FAERS Safety Report 4891063-8 (Version None)
Quarter: 2006Q1

REPORT INFORMATION
  Report Type: 
  Country: None (occurrence: None)
  Receive Date: 20060125
  Receipt Date: 20060119
  Transmission Date: 20060701
  Serious: Yes (Hospitalization)
  Sender: FDA-Public Use
  Company Number: US-JNJFOC-20060104254

PATIENT
  Sex: Male
  Weight: 80.74 kg

DRUGS (8)
  1. INFLIXIMAB [Suspect]
     Indication: RHEUMATOID ARTHRITIS
     Route: 042
  2. METHOTREXATE [Concomitant]
  3. PREVACID [Concomitant]
  4. FOLIC ACID [Concomitant]
  5. LIPITOR [Concomitant]
  6. AGGRENOX [Concomitant]
  7. AGGRENOX [Concomitant]
     Dosage: 25/200 TWICE DAILY
  8. ENALAPRIL [Concomitant]

REACTIONS (2)
  - COLONIC POLYP [None]
  - PROCEDURAL COMPLICATION [None]
